FAERS Safety Report 5355202-7 (Version None)
Quarter: 2007Q2

REPORT INFORMATION
  Report Type: 
  Country: None (occurrence: None)
  Receive Date: 20070529
  Receipt Date: 20060629
  Transmission Date: 20071010
  Serious: Yes (Disabling)
  Sender: FDA-Public Use
  Company Number: 06-000611

PATIENT
  Sex: Female

DRUGS (1)
  1. OVCON-35 [Suspect]
     Indication: DYSFUNCTIONAL UTERINE BLEEDING

REACTIONS (1)
  - CEREBROVASCULAR ACCIDENT [None]
